FAERS Safety Report 7711831-4 (Version None)
Quarter: 2011Q3

REPORT INFORMATION
  Report Type: 
  Country: None (occurrence: None)
  Receive Date: 20110826
  Receipt Date: 20110819
  Transmission Date: 20111222
  Serious: Yes (Death)
  Sender: FDA-Public Use
  Company Number: PL-ASTELLAS-2011EU005678

PATIENT
  Age: 4 Year
  Sex: Male

DRUGS (7)
  1. MYCOPHENOLATE MOFETIL [Concomitant]
     Indication: GRAFT VERSUS HOST DISEASE
     Dosage: UNK
     Route: 065
  2. METHYLPREDNISOLONE [Concomitant]
     Indication: GRAFT VERSUS HOST DISEASE
     Dosage: 1 MG/KG, UNKNOWN/D
     Route: 065
  3. GLUCOCORTICOSTEROIDS [Concomitant]
     Indication: THROMBOCYTOPENIA
  4. GLUCOCORTICOSTEROIDS [Concomitant]
     Indication: GRAFT VERSUS HOST DISEASE
     Dosage: UNK
     Route: 065
  5. MYCOPHENOLATE MOFETIL [Concomitant]
     Indication: THROMBOCYTOPENIA
  6. TACROLIMUS [Suspect]
     Indication: CHRONIC GRAFT VERSUS HOST DISEASE
     Dosage: 3 MG, UID/QD
     Route: 048
  7. TACROLIMUS [Suspect]
     Indication: THROMBOCYTOPENIA

REACTIONS (5)
  - ALTERED STATE OF CONSCIOUSNESS [None]
  - OFF LABEL USE [None]
  - CONVULSION [None]
  - HEMIPLEGIA [None]
  - STRABISMUS [None]
